FAERS Safety Report 7984187-X (Version None)
Quarter: 2011Q4

REPORT INFORMATION
  Report Type: 
  Country: None (occurrence: None)
  Receive Date: 20111214
  Receipt Date: 20111201
  Transmission Date: 20120403
  Serious: Yes (Death, Hospitalization)
  Sender: FDA-Public Use
  Company Number: UTC-012157

PATIENT
  Age: 67 Year
  Sex: Female
  Weight: 50 kg

DRUGS (3)
  1. DIURETICS (DIURETICS) [Concomitant]
  2. REMODULIN [Suspect]
     Indication: PULMONARY HYPERTENSION
     Dosage: 148.32 UG/KG (0.103 UG/KG,1 IN 1 MIN),INTRAVENOUS
     Route: 042
     Dates: start: 20090301
  3. OXYGEN (OXYGEN) [Concomitant]

REACTIONS (1)
  - CARDIAC FAILURE [None]
